FAERS Safety Report 18709413 (Version 1)
Quarter: 2021Q1

REPORT INFORMATION
  Report Type: Spontaneous
  Country: GB (occurrence: GB)
  Receive Date: 20210106
  Receipt Date: 20210106
  Transmission Date: 20210419
  Serious: Yes (Other)
  Sender: FDA-Public Use
  Company Number: GB-TEVA-2020-GB-1865116

PATIENT
  Age: 69 Year
  Sex: Female
  Weight: 66 kg

DRUGS (7)
  1. TRIMETHOPRIM. [Concomitant]
     Active Substance: TRIMETHOPRIM
     Dosage: FOR 5 DAYS FOR SUSP...:UNIT DOSE:2DOSAGEFORM
     Dates: start: 20201209
  2. NITROFURANTOIN. [Suspect]
     Active Substance: NITROFURANTOIN
     Dosage: 100MILLIGRAM:MODIFIED?RELEASE
     Dates: start: 20190207
  3. HYPROMELLOSE [Concomitant]
     Active Substance: HYPROMELLOSES
     Dosage: USE AS DIRECTED
     Dates: start: 20200925
  4. LOSARTAN. [Concomitant]
     Active Substance: LOSARTAN
     Dates: start: 20190701
  5. TEARS NATURALE FREE [Concomitant]
     Active Substance: DEXTRAN 70\HYPROMELLOSE 2910 (4000 MPA.S)
     Dosage: 1GTT
     Dates: start: 20181031
  6. JEXT [Concomitant]
     Active Substance: EPINEPHRINE BITARTRATE
     Dosage: USE AS DIRECTED
     Dates: start: 20190602
  7. DERMOL [Concomitant]
     Active Substance: BENZALKONIUM CHLORIDE\CHLORHEXIDINE HYDROCHLORIDE\ISOPROPYL MYRISTATE\PARAFFIN
     Dosage: 1 DF:UNIT DOSE:2DOSAGEFORM
     Dates: start: 20110927

REACTIONS (1)
  - Rash [Recovered/Resolved]

NARRATIVE: CASE EVENT DATE: 20190208
